FAERS Safety Report 12365028 (Version 2)
Quarter: 2016Q2

REPORT INFORMATION
  Report Type: Spontaneous
  Country: TR (occurrence: TR)
  Receive Date: 20160513
  Receipt Date: 20160620
  Transmission Date: 20160815
  Serious: Yes (Disabling, Other)
  Sender: FDA-Public Use
  Company Number: PHHY2016TR065705

PATIENT
  Sex: Male

DRUGS (2)
  1. TEOKAP [Concomitant]
     Active Substance: THEOPHYLLINE ANHYDROUS
     Dosage: QD (1 X 1)
  2. TASIGNA [Suspect]
     Active Substance: NILOTINIB
     Indication: CHRONIC MYELOID LEUKAEMIA
     Dosage: 800 MG, QD (DAILY)
     Route: 048
     Dates: start: 20121113

REACTIONS (2)
  - Adenocarcinoma of colon [Not Recovered/Not Resolved]
  - Second primary malignancy [Not Recovered/Not Resolved]

NARRATIVE: CASE EVENT DATE: 20160419
